FAERS Safety Report 10912146 (Version 1)
Quarter: 2015Q1

REPORT INFORMATION
  Report Type: Spontaneous
  Country: None (occurrence: None)
  Receive Date: 20150310
  Receipt Date: 20150310
  Transmission Date: 20150721
  Serious: Yes (Disabling)
  Sender: FDA-Public Use
  Company Number: None

PATIENT
  Age: 38 Year
  Sex: Female
  Weight: 56 kg

DRUGS (2)
  1. VICKS SINEX MICROMIST [Suspect]
     Active Substance: OXYMETAZOLINE HYDROCHLORIDE
     Route: 055
  2. VICKS SINEX MICROMIST [Suspect]
     Active Substance: OXYMETAZOLINE HYDROCHLORIDE
     Indication: SINUSITIS
     Dosage: SPRAY, AS NEEDED, INHALATION
     Route: 055

REACTIONS (2)
  - Product contamination [None]
  - Bronchitis [None]
